FAERS Safety Report 9915920 (Version 1)
Quarter: 2014Q1

REPORT INFORMATION
  Report Type: Spontaneous
  Country: US (occurrence: None)
  Receive Date: 20140219
  Receipt Date: 20140219
  Transmission Date: 20141002
  Serious: Yes (Other)
  Sender: FDA-Public Use
  Company Number: CIO14011146

PATIENT
  Sex: Female

DRUGS (1)
  1. NYQUIL [Suspect]
     Dosage: UNKNOWN, ORAL
     Route: 048

REACTIONS (3)
  - Coma [None]
  - Incorrect dose administered [None]
  - Intentional overdose [None]
